FAERS Safety Report 6561009-5 (Version None)
Quarter: 2010Q1

REPORT INFORMATION
  Report Type: 
  Country: None (occurrence: None)
  Receive Date: 20100130
  Receipt Date: 20090930
  Transmission Date: 20100710
  Serious: No
  Sender: FDA-Public Use
  Company Number: US-ABBOTT-09P-163-0600225-00

PATIENT
  Sex: Female
  Weight: 144 kg

DRUGS (1)
  1. HUMIRA [Suspect]
     Indication: CROHN'S DISEASE
     Dates: start: 20090622

REACTIONS (3)
  - FREQUENT BOWEL MOVEMENTS [None]
  - MUCOUS STOOLS [None]
  - NAUSEA [None]
